FAERS Safety Report 8321029-7 (Version None)
Quarter: 2012Q2

REPORT INFORMATION
  Report Type: 
  Country: None (occurrence: None)
  Receive Date: 20120430
  Receipt Date: 20120406
  Transmission Date: 20120825
  Serious: No
  Sender: FDA-Public Use
  Company Number: US-JNJFOC-20120404325

PATIENT
  Sex: Female

DRUGS (2)
  1. INVEGA SUSTENNA [Suspect]
     Route: 030
  2. INVEGA SUSTENNA [Suspect]
     Indication: BIPOLAR DISORDER
     Dosage: DAY 8 DOSE
     Route: 030
     Dates: start: 20120405

REACTIONS (3)
  - FATIGUE [None]
  - FEELING ABNORMAL [None]
  - SEDATION [None]
